FAERS Safety Report 12601812 (Version 1)
Quarter: 2016Q3

REPORT INFORMATION
  Report Type: Spontaneous
  Country: US (occurrence: None)
  Receive Date: 20160727
  Receipt Date: 20160727
  Transmission Date: 20161109
  Serious: No
  Sender: FDA-Public Use
  Company Number: None

PATIENT
  Sex: Female

DRUGS (1)
  1. BOTOX [Suspect]
     Active Substance: ONABOTULINUMTOXINA
     Indication: MIGRAINE
     Dosage: 200 UNITS  EVERY 90 DAYS  FACIAL MUSCLES
     Dates: start: 20150623

REACTIONS (3)
  - Amnesia [None]
  - Blindness [None]
  - Alopecia [None]
